FAERS Safety Report 16016315 (Version 3)
Quarter: 2019Q1

REPORT INFORMATION
  Report Type: Report from Study
  Country: CA (occurrence: CA)
  Receive Date: 20190228
  Receipt Date: 20190318
  Transmission Date: 20190418
  Serious: Yes (Hospitalization, Other)
  Sender: FDA-Public Use
  Company Number: CA-SA-2018SA192378

PATIENT
  Age: 55 Year
  Sex: Female

DRUGS (10)
  1. ZANTAC [Concomitant]
     Active Substance: RANITIDINE HYDROCHLORIDE
     Indication: DYSPEPSIA
  2. METHYLPREDNISOLONE. [Concomitant]
     Active Substance: METHYLPREDNISOLONE
     Indication: PREMEDICATION
     Dosage: 1 G, UNK
     Route: 042
     Dates: start: 20180710, end: 20180718
  3. ACYCLOVIR [ACICLOVIR] [Concomitant]
     Active Substance: ACYCLOVIR
     Indication: PROPHYLAXIS
     Dosage: 200 MG, BID
     Route: 048
     Dates: start: 20180710
  4. ALERTEC [Concomitant]
     Active Substance: MODAFINIL
     Indication: FATIGUE
     Dosage: UNK, UNK
     Route: 048
  5. ALEMTUZUMAB [Suspect]
     Active Substance: ALEMTUZUMAB
     Dosage: 12 MG, QD
     Route: 041
     Dates: start: 20180716, end: 20180718
  6. ZANTAC [Concomitant]
     Active Substance: RANITIDINE HYDROCHLORIDE
     Indication: PREMEDICATION
     Dosage: 150 MG, UNK
     Route: 048
     Dates: start: 20180710, end: 20180718
  7. REACTINE [CETIRIZINE HYDROCHLORIDE] [Concomitant]
     Active Substance: CETIRIZINE HYDROCHLORIDE
     Indication: PREMEDICATION
     Dosage: 10 MG, UNK
     Route: 048
     Dates: start: 20180710, end: 20180718
  8. MULTIVITAMIN (16) [Concomitant]
     Active Substance: VITAMINS
     Indication: PROPHYLAXIS
     Dosage: UNK, UNK
     Route: 048
  9. ROBAX PLATINUM [Concomitant]
     Active Substance: IBUPROFEN\METHOCARBAMOL
     Indication: BACK PAIN
     Dosage: UNK, UNK
     Route: 065
  10. ALEMTUZUMAB [Suspect]
     Active Substance: ALEMTUZUMAB
     Indication: RELAPSING-REMITTING MULTIPLE SCLEROSIS
     Dosage: 12 MG, QD
     Route: 041
     Dates: start: 20180710, end: 20180711

REACTIONS (41)
  - White blood cell count decreased [Not Recovered/Not Resolved]
  - Thrombosis [Not Recovered/Not Resolved]
  - Blood calcium increased [Not Recovered/Not Resolved]
  - White blood cell count increased [Unknown]
  - Red cell distribution width increased [Unknown]
  - Lymphocyte count decreased [Not Recovered/Not Resolved]
  - Parathyroid cyst [Not Recovered/Not Resolved]
  - Malignant melanoma [Not Recovered/Not Resolved]
  - Platelet count abnormal [Recovered/Resolved]
  - Urine abnormality [Not Recovered/Not Resolved]
  - Red blood cell count decreased [Not Recovered/Not Resolved]
  - Red blood cells urine positive [Recovered/Resolved]
  - Sleep apnoea syndrome [Not Recovered/Not Resolved]
  - Feeling abnormal [Not Recovered/Not Resolved]
  - Leukopenia [Unknown]
  - Immature granulocyte count increased [Not Recovered/Not Resolved]
  - Urine analysis abnormal [Unknown]
  - Bacterial test positive [Recovered/Resolved]
  - Neutropenia [Unknown]
  - Monocyte percentage increased [Not Recovered/Not Resolved]
  - Insomnia [Recovered/Resolved]
  - Neutrophil count decreased [Unknown]
  - Crystal urine present [Unknown]
  - Urine analysis abnormal [Not Recovered/Not Resolved]
  - Haemoglobin decreased [Recovered/Resolved]
  - Protein total increased [Not Recovered/Not Resolved]
  - Mean cell volume increased [Unknown]
  - Haematocrit decreased [Recovered/Resolved]
  - Lymphopenia [Unknown]
  - Headache [Recovered/Resolved]
  - White blood cells urine positive [Recovered/Resolved]
  - Nausea [Recovered/Resolved]
  - Lymphocyte percentage decreased [Not Recovered/Not Resolved]
  - Crystal urine present [Unknown]
  - Back pain [Recovered/Resolved]
  - Macrocytosis [Unknown]
  - Dyspepsia [Recovered/Resolved]
  - Colorectal cancer metastatic [Not Recovered/Not Resolved]
  - Mean cell haemoglobin concentration decreased [Not Recovered/Not Resolved]
  - Urinary sediment present [Not Recovered/Not Resolved]
  - Thyroid function test abnormal [Not Recovered/Not Resolved]

NARRATIVE: CASE EVENT DATE: 20180710
